FAERS Safety Report 9602187 (Version 1)
Quarter: 2013Q4

REPORT INFORMATION
  Report Type: Spontaneous
  Country: ES (occurrence: None)
  Receive Date: 20131003
  Receipt Date: 20131003
  Transmission Date: 20140711
  Serious: Yes (Hospitalization, Other)
  Sender: FDA-Public Use
  Company Number: NSR_01254_2013

PATIENT
  Age: 50 Year
  Sex: Female

DRUGS (3)
  1. LAMOTRIGINE [Suspect]
     Indication: EPILEPSY
  2. METAMIZOLE [Concomitant]
  3. IBUPROFEN [Concomitant]

REACTIONS (12)
  - Stevens-Johnson syndrome [None]
  - Eye ulcer [None]
  - Ocular discomfort [None]
  - Eye penetration [None]
  - Corneal transplant [None]
  - Post procedural complication [None]
  - Trichiasis [None]
  - Punctate keratitis [None]
  - Swollen tongue [None]
  - Tongue disorder [None]
  - Conjunctival haemorrhage [None]
  - Corneal erosion [None]
